FAERS Safety Report 17458593 (Version 1)
Quarter: 2020Q1

REPORT INFORMATION
  Report Type: Spontaneous
  Country: NL (occurrence: NL)
  Receive Date: 20200225
  Receipt Date: 20200225
  Transmission Date: 20200409
  Serious: Yes (Hospitalization)
  Sender: FDA-Public Use
  Company Number: NL-009507513-2002NLD006780

PATIENT
  Sex: Male
  Weight: 85 kg

DRUGS (17)
  1. PRAVASTATIN. [Concomitant]
     Active Substance: PRAVASTATIN
     Dosage: 20 MILLIGRAM
  2. PANTOPRAZOLE [Concomitant]
     Active Substance: PANTOPRAZOLE
     Dosage: 40 MG, GASTRIC ACID TABLET PANTOPRAZOLE SAM
  3. SODIUM CHLORIDE. [Concomitant]
     Active Substance: SODIUM CHLORIDE
     Dosage: INFUSION FLUID, 9 MG/ML (MILLIGRAM PER MILLILITER)
  4. MORPHINE [Concomitant]
     Active Substance: MORPHINE
     Dosage: INJECTION FLUID, 5 MG/ML (MILLIGRAM PER MILLILITER)
  5. TEMAZEPAM. [Concomitant]
     Active Substance: TEMAZEPAM
     Dosage: CAPSULE, 10 MG (MILLIGRAM)
  6. METHYLPREDNISOLONE. [Concomitant]
     Active Substance: METHYLPREDNISOLONE
     Dosage: IV 80 MG
     Route: 042
  7. LEVOTHYROXINE SODIUM. [Concomitant]
     Active Substance: LEVOTHYROXINE SODIUM
     Dosage: TABLET, 125 ?G (MICROGRAM)
  8. CAD [Concomitant]
     Active Substance: CALCIUM CARBONATE\CHOLECALCIFEROL
     Dosage: SACHET (LEMON EFFERVESCENT GRANULES), 2,5 G (GRAMS)/880 UNITS
  9. POTASSIUM CHLORIDE. [Concomitant]
     Active Substance: POTASSIUM CHLORIDE
     Dosage: SOLUTION FOR INFUSION, 37,3 MG/ML (MILLIGRAM PER MILLILITER)
  10. CEFUROXIME. [Concomitant]
     Active Substance: CEFUROXIME
     Dosage: POWDER INJECTION LIQUID, 750 MG (MILLIGRAM)
  11. BUDESONIDE. [Concomitant]
     Active Substance: BUDESONIDE
     Dosage: NASAL SPRAY, 100 ?G/DOSIS (MICROGRAM PER DOSIS)
  12. ACETAMINOPHEN. [Concomitant]
     Active Substance: ACETAMINOPHEN
     Dosage: TABLET, 1000 MG (MILLIGRAM)
  13. ONDANSETRON [Concomitant]
     Active Substance: ONDANSETRON
     Dosage: MELTING TABLET, 8 MG (MILLIGRAM)
  14. PEMBROLIZUMAB. [Suspect]
     Active Substance: PEMBROLIZUMAB
     Indication: MALIGNANT MELANOMA STAGE III
     Dosage: SOLUTION FOR INFUSION, 177,5 MG, EVERY 3 WEEKS, 177,5 MG IN 50 ML NACL
     Dates: start: 20190429, end: 20200129
  15. OXYCODONE [Concomitant]
     Active Substance: OXYCODONE
     Dosage: TABLET WITH REGULATED RELEASE, 10 MG (MILLIGRAM)
  16. METRONIDAZOLE. [Concomitant]
     Active Substance: METRONIDAZOLE
     Dosage: INFUSION FLUID, 5 MG/ML (MILLIGRAM PER MILLILITER)
  17. SULFAMETHOXAZOLE (+) TRIMETHOPRIM [Concomitant]
     Active Substance: SULFAMETHOXAZOLE\TRIMETHOPRIM
     Dosage: TABLET, 80/400 MG (MILLIGRAM) (REPORTED AS COTRIMOXAZOL)

REACTIONS (1)
  - Duodenitis [Not Recovered/Not Resolved]
